FAERS Safety Report 7258929-5 (Version None)
Quarter: 2011Q1

REPORT INFORMATION
  Report Type: 
  Country: None (occurrence: None)
  Receive Date: 20110129
  Receipt Date: 20100614
  Transmission Date: 20110831
  Serious: No
  Sender: FDA-Public Use
  Company Number: US-ABBOTT-10P-163-0651247-00

PATIENT
  Age: 64 Year
  Sex: Male

DRUGS (6)
  1. FISH OIL [Concomitant]
     Route: 048
  2. YUCCA [Concomitant]
     Route: 048
  3. CHROMIUM CHLORIDE [Concomitant]
     Route: 048
  4. HUMIRA [Suspect]
     Indication: COLITIS ULCERATIVE
     Dates: start: 20091101
  5. JANUMET [Concomitant]
     Route: 048
  6. HERBAL SUPPLEMENT [Concomitant]

REACTIONS (4)
  - INJECTION SITE HAEMORRHAGE [None]
  - LIQUID PRODUCT PHYSICAL ISSUE [None]
  - INJECTION SITE HAEMATOMA [None]
  - INJECTION SITE PAIN [None]
